FAERS Safety Report 7331266-6 (Version None)
Quarter: 2011Q1

REPORT INFORMATION
  Report Type: 
  Country: None (occurrence: None)
  Receive Date: 20110303
  Receipt Date: 20110303
  Transmission Date: 20110831
  Serious: Yes (Other)
  Sender: FDA-Public Use
  Company Number: None

PATIENT
  Age: 43 Year
  Sex: Male
  Weight: 104.3273 kg

DRUGS (1)
  1. ALCOHOL SWAB 70% V/V WALGREENS [Suspect]

REACTIONS (2)
  - PRODUCT QUALITY ISSUE [None]
  - SKIN BACTERIAL INFECTION [None]
